FAERS Safety Report 6249299-X (Version None)
Quarter: 2009Q2

REPORT INFORMATION
  Report Type: 
  Country: None (occurrence: None)
  Receive Date: 20090629
  Receipt Date: 20090424
  Transmission Date: 20091009
  Serious: Yes (Hospitalization)
  Sender: FDA-Public Use
  Company Number: US-BRISTOL-MYERS SQUIBB COMPANY-14602510

PATIENT
  Age: 56 Year
  Sex: Male
  Weight: 75 kg

DRUGS (7)
  1. SPRYCEL [Suspect]
     Indication: PROSTATE CANCER
     Route: 048
     Dates: start: 20081212, end: 20081225
  2. FLEXERIL [Concomitant]
     Route: 048
  3. NORVASC [Concomitant]
     Route: 048
  4. CALCIUM [Concomitant]
     Route: 048
  5. FENTANYL [Concomitant]
     Dosage: DERMAL EVERY 3 DAYS
     Route: 062
  6. COMPAZINE [Concomitant]
     Route: 048
  7. MAGNESIUM SULFATE [Concomitant]
     Route: 048

REACTIONS (1)
  - MUSCULAR WEAKNESS [None]
